FAERS Safety Report 12553119 (Version 3)
Quarter: 2016Q3

REPORT INFORMATION
  Report Type: Report from Study
  Country: US (occurrence: US)
  Receive Date: 20160713
  Receipt Date: 20160921
  Transmission Date: 20161109
  Serious: Yes (Death, Life-Threatening)
  Sender: FDA-Public Use
  Company Number: US-009507513-1607USA004275

PATIENT
  Age: 77 Year
  Sex: Male

DRUGS (2)
  1. KEYTRUDA [Suspect]
     Active Substance: PEMBROLIZUMAB
     Indication: METASTASES TO BONE
  2. KEYTRUDA [Suspect]
     Active Substance: PEMBROLIZUMAB
     Indication: PROSTATE CANCER
     Dosage: 160 MG, ONCE
     Dates: start: 20160603

REACTIONS (3)
  - Product use issue [Unknown]
  - Death [Fatal]
  - Pneumonitis [Unknown]

NARRATIVE: CASE EVENT DATE: 201606
